FAERS Safety Report 24619923 (Version 1)
Quarter: 2024Q4

REPORT INFORMATION
  Report Type: Spontaneous
  Country: CH (occurrence: CH)
  Receive Date: 20241114
  Receipt Date: 20241114
  Transmission Date: 20250115
  Serious: Yes (Hospitalization)
  Sender: SANDOZ
  Company Number: None

PATIENT
  Age: 81 Year
  Sex: Male

DRUGS (7)
  1. ANAFRANIL [Suspect]
     Active Substance: CLOMIPRAMINE HYDROCHLORIDE
     Indication: Product used for unknown indication
     Dosage: UNK (POSOLOGIE INCONNUE)
     Route: 065
     Dates: start: 20240816, end: 20240816
  2. ATORVASTATIN [Suspect]
     Active Substance: ATORVASTATIN
     Indication: Product used for unknown indication
     Dosage: UNK (POSOLOGIE ET NOMBRE INCONNU)
     Route: 065
     Dates: start: 20240816, end: 20240816
  3. EXFORGE [Suspect]
     Active Substance: AMLODIPINE BESYLATE\VALSARTAN
     Indication: Product used for unknown indication
     Dosage: 15 DOSAGE FORM, ONCE/SINGLE
     Route: 065
     Dates: start: 20240816, end: 20240816
  4. PLAVIX [Suspect]
     Active Substance: CLOPIDOGREL BISULFATE
     Indication: Product used for unknown indication
     Dosage: 300 MG, ONCE/SINGLE
     Route: 065
     Dates: start: 20240816, end: 20240816
  5. OXAZEPAM [Suspect]
     Active Substance: OXAZEPAM
     Indication: Product used for unknown indication
     Dosage: 150 MG, ONCE/SINGLE
     Route: 065
     Dates: start: 20240816, end: 20240816
  6. TENORMIN [Suspect]
     Active Substance: ATENOLOL
     Indication: Product used for unknown indication
     Dosage: 2000 MG, ONCE/SINGLE
     Route: 065
     Dates: start: 20240816, end: 20240816
  7. VESICARE [Suspect]
     Active Substance: SOLIFENACIN SUCCINATE
     Indication: Product used for unknown indication
     Dosage: UNK (POSOLOGIE ET NOMBRE INCONNU)
     Route: 065
     Dates: start: 20240816, end: 20240816

REACTIONS (7)
  - Oxygen saturation decreased [Unknown]
  - Hypotension [Recovering/Resolving]
  - Miosis [Recovered/Resolved]
  - Bradycardia [Recovering/Resolving]
  - Loss of consciousness [Recovered/Resolved]
  - Mydriasis [Unknown]
  - Intentional overdose [Recovered/Resolved]

NARRATIVE: CASE EVENT DATE: 20240816
